FAERS Safety Report 4525356-0 (Version None)
Quarter: 2004Q4

REPORT INFORMATION
  Report Type: 
  Country: None (occurrence: None)
  Receive Date: 20041109
  Receipt Date: 20040204
  Transmission Date: 20050328
  Serious: Yes (Hospitalization)
  Sender: FDA-Public Use
  Company Number: 235212

PATIENT
  Age: 11 Year
  Sex: Female

DRUGS (1)
  1. NORDITROPIN [Suspect]
     Indication: BODY HEIGHT DECREASED
     Dates: end: 20040101

REACTIONS (1)
  - SLIPPED FEMORAL EPIPHYSIS [None]
